FAERS Safety Report 24530237 (Version 3)
Quarter: 2024Q4

REPORT INFORMATION
  Report Type: Spontaneous
  Country: GN (occurrence: GN)
  Receive Date: 20241021
  Receipt Date: 20241129
  Transmission Date: 20250115
  Serious: Yes (Other)
  Sender: NOVARTIS
  Company Number: GN-002147023-NVSC2018GN034611

PATIENT
  Age: 4 Year
  Sex: Male

DRUGS (1)
  1. ARTEMETHER\LUMEFANTRINE [Suspect]
     Active Substance: ARTEMETHER\LUMEFANTRINE
     Indication: Malaria
     Dosage: 20MG/ 120 MG, BID
     Route: 065

REACTIONS (1)
  - Suspected drug-induced liver injury [Recovered/Resolved]
